FAERS Safety Report 6221165-5 (Version None)
Quarter: 2009Q2

REPORT INFORMATION
  Report Type: 
  Country: None (occurrence: None)
  Receive Date: 20090605
  Receipt Date: 20090529
  Transmission Date: 20091009
  Serious: Yes (Other)
  Sender: FDA-Public Use
  Company Number: CHNY2009GB02206

PATIENT
  Age: 91 Year

DRUGS (8)
  1. FERROUS SULFATE TAB [Suspect]
     Indication: ANAEMIA
     Dosage: 200 MG, BID, ORAL
     Route: 048
     Dates: start: 20090425, end: 20090425
  2. FERROUS SULFATE TAB [Suspect]
     Indication: IRON DEFICIENCY
     Dosage: 200 MG, BID, ORAL
     Route: 048
     Dates: start: 20090425, end: 20090425
  3. CITALOPRAM HYDROBROMIDE [Concomitant]
  4. ENOXAPARIN SODIUM [Concomitant]
  5. FOLIC ACID [Concomitant]
  6. LANSOPRAZOLE [Concomitant]
  7. ORAMORPH SR [Concomitant]
  8. TAMOXIFEN CITRATE [Concomitant]

REACTIONS (1)
  - SWOLLEN TONGUE [None]
